FAERS Safety Report 20907276 (Version 3)
Quarter: 2022Q2

REPORT INFORMATION
  Report Type: Spontaneous
  Country: JP (occurrence: JP)
  Receive Date: 20220602
  Receipt Date: 20220628
  Transmission Date: 20220721
  Serious: Yes (Other)
  Sender: FDA-Public Use
  Company Number: JP-PFIZER INC-202200751181

PATIENT
  Age: 20 Year
  Sex: Female
  Weight: 50 kg

DRUGS (2)
  1. DEXMEDETOMIDINE HYDROCHLORIDE [Suspect]
     Active Substance: DEXMEDETOMIDINE HYDROCHLORIDE
     Indication: Sedative therapy
     Dosage: UNK (6 MCG/KG/HR; INITIAL LOADING DOSE)
     Route: 042
  2. DEXMEDETOMIDINE HYDROCHLORIDE [Suspect]
     Active Substance: DEXMEDETOMIDINE HYDROCHLORIDE
     Dosage: UNK (0.4 MCG/KG/HR; MAINTENANCE DOSE)
     Route: 042

REACTIONS (3)
  - Feeling abnormal [Recovering/Resolving]
  - Fear of falling [Recovering/Resolving]
  - Bradycardia [Unknown]
